FAERS Safety Report 4360903-3 (Version None)
Quarter: 2004Q2

REPORT INFORMATION
  Report Type: 
  Country: None (occurrence: None)
  Receive Date: 20040517
  Receipt Date: 20040507
  Transmission Date: 20050107
  Serious: No
  Sender: FDA-Public Use
  Company Number: 2004SE02406

PATIENT
  Age: 63 Year
  Sex: Male

DRUGS (4)
  1. AMIAS [Suspect]
     Indication: HYPERTENSION
     Dosage: 16 MG DAILY PO
     Route: 048
  2. INSULIN NORDISK MIXTARD (PORK) [Concomitant]
  3. ANADIN PARACETAMOL [Concomitant]
  4. BENDROFLUAZIDE [Concomitant]

REACTIONS (3)
  - DIZZINESS [None]
  - INTENTIONAL OVERDOSE [None]
  - VOMITING [None]
